FAERS Safety Report 9717228 (Version 5)
Quarter: 2013Q4

REPORT INFORMATION
  Report Type: Spontaneous
  Country: IT (occurrence: None)
  Receive Date: 20131125
  Receipt Date: 20131227
  Transmission Date: 20140711
  Serious: Yes (Life-Threatening, Hospitalization)
  Sender: FDA-Public Use
  Company Number: AUR-APL-2013-09764

PATIENT
  Age: 66 Year
  Sex: Male

DRUGS (3)
  1. CITALOPRAM (CITALOPRAM) [Suspect]
     Indication: PRODUCT USED FOR UNKNOWN INDICATION
     Route: 048
     Dates: start: 20131001
  2. RAMIPRIL (RAMIPRIL) [Suspect]
     Indication: HYPERTENSION
     Route: 048
     Dates: start: 20131001, end: 20131003
  3. TOLEP [Suspect]
     Indication: EPILEPSY
     Dosage: 2 DOSAGE FORMS, 1 D
     Route: 048
     Dates: start: 20101001, end: 20131003

REACTIONS (2)
  - Bradycardia [None]
  - Cardiac arrest [None]
